FAERS Safety Report 7429523-8 (Version None)
Quarter: 2011Q2

REPORT INFORMATION
  Report Type: 
  Country: None (occurrence: None)
  Receive Date: 20110421
  Receipt Date: 20110414
  Transmission Date: 20111010
  Serious: Yes (Death, Hospitalization)
  Sender: FDA-Public Use
  Company Number: A0814587A

PATIENT
  Age: 66 Year
  Sex: Male
  Weight: 81 kg

DRUGS (8)
  1. LANTUS [Concomitant]
  2. TRICOR [Concomitant]
  3. LABETALOL [Concomitant]
  4. LIPITOR [Concomitant]
  5. PRILOSEC [Concomitant]
  6. AVANDIA [Suspect]
     Dosage: 4MG TWICE PER DAY
     Route: 048
     Dates: start: 19990601, end: 20061101
  7. LEVAQUIN [Concomitant]
  8. PREDNISONE [Concomitant]

REACTIONS (5)
  - CARDIO-RESPIRATORY ARREST [None]
  - PULMONARY FIBROSIS [None]
  - CARDIAC ARREST [None]
  - DYSPNOEA [None]
  - RESPIRATORY FAILURE [None]
